FAERS Safety Report 9784530 (Version 1)
Quarter: 2013Q4

REPORT INFORMATION
  Report Type: Spontaneous
  Country: US (occurrence: US)
  Receive Date: 20131226
  Receipt Date: 20131226
  Transmission Date: 20140711
  Serious: No
  Sender: FDA-Public Use
  Company Number: US-TEVA-451941USA

PATIENT
  Age: 50 Year
  Sex: Male

DRUGS (2)
  1. NUVIGIL [Suspect]
     Indication: SLEEP APNOEA SYNDROME
  2. NUVIGIL [Suspect]
     Dates: end: 20131216

REACTIONS (1)
  - Rash [Recovered/Resolved]
